FAERS Safety Report 4727999-8 (Version None)
Quarter: 2005Q3

REPORT INFORMATION
  Report Type: 
  Country: None (occurrence: None)
  Receive Date: 20050725
  Receipt Date: 20050401
  Transmission Date: 20060218
  Serious: No
  Sender: FDA-Public Use
  Company Number: USA050494669

PATIENT
  Age: 66 Year
  Sex: Female

DRUGS (1)
  1. STRATTERA [Suspect]
     Dosage: 40 MG
     Dates: start: 20041201, end: 20050309

REACTIONS (4)
  - FATIGUE [None]
  - MUSCULOSKELETAL PAIN [None]
  - PAIN [None]
  - VEIN PAIN [None]
